FAERS Safety Report 6478699-8 (Version None)
Quarter: 2009Q4

REPORT INFORMATION
  Report Type: 
  Country: None (occurrence: None)
  Receive Date: 20091207
  Receipt Date: 20091125
  Transmission Date: 20100525
  Serious: Yes (Other)
  Sender: FDA-Public Use
  Company Number: DE-PFIZER INC-2008046253

PATIENT
  Age: 35 Year
  Sex: Male
  Weight: 78 kg

DRUGS (2)
  1. CABERGOLINE [Suspect]
     Indication: PARKINSON'S DISEASE
     Dosage: UNK MG, UNK
     Route: 048
     Dates: start: 20060401, end: 20080101
  2. TREMARIT [Concomitant]
     Dosage: UNK
     Route: 048

REACTIONS (4)
  - AGGRESSION [None]
  - HYPERSEXUALITY [None]
  - LIBIDO INCREASED [None]
  - PATHOLOGICAL GAMBLING [None]
